FAERS Safety Report 9552310 (Version 1)
Quarter: 2013Q3

REPORT INFORMATION
  Report Type: Spontaneous
  Country: US (occurrence: US)
  Receive Date: 20130925
  Receipt Date: 20130925
  Transmission Date: 20140515
  Serious: Yes (Hospitalization)
  Sender: FDA-Public Use
  Company Number: US-NOVOPROD-387979

PATIENT
  Age: 65 Year
  Sex: Male

DRUGS (2)
  1. LEVEMIR FLEXPEN [Suspect]
     Indication: TYPE 2 DIABETES MELLITUS
     Route: 058
  2. NOVOLOG [Suspect]
     Indication: TYPE 2 DIABETES MELLITUS
     Dosage: SLIDING SCALE
     Route: 058

REACTIONS (1)
  - Diabetic foot [Unknown]
